FAERS Safety Report 14657085 (Version 7)
Quarter: 2019Q2

REPORT INFORMATION
  Report Type: Report from Study
  Country: US (occurrence: US)
  Receive Date: 20180319
  Receipt Date: 20190422
  Transmission Date: 20190711
  Serious: Yes (Hospitalization)
  Sender: FDA-Public Use
  Company Number: US-ACTELION-A-NJ2017-152595

PATIENT
  Age: 37 Year
  Sex: Female
  Weight: 63.95 kg

DRUGS (3)
  1. VELETRI [Suspect]
     Active Substance: EPOPROSTENOL
     Dosage: 40 NG/KG, PER MIN
     Route: 042
  2. VELETRI [Suspect]
     Active Substance: EPOPROSTENOL
     Indication: PULMONARY ARTERIAL HYPERTENSION
     Dosage: 35.5 NG/KG, PER MIN
     Route: 042
  3. VELETRI [Suspect]
     Active Substance: EPOPROSTENOL
     Dosage: UNK
     Route: 042
     Dates: start: 2012

REACTIONS (20)
  - Bone pain [Unknown]
  - Disease progression [Unknown]
  - Haemorrhage [Unknown]
  - Nausea [Unknown]
  - Lung transplant [Unknown]
  - Arthralgia [Unknown]
  - Vomiting [Unknown]
  - Influenza [Unknown]
  - Diarrhoea [Unknown]
  - Headache [Unknown]
  - Blister rupture [Unknown]
  - Blister [Unknown]
  - Pain in jaw [Unknown]
  - Chest pain [Unknown]
  - Pain [Unknown]
  - Transplant evaluation [Unknown]
  - Haemoptysis [Unknown]
  - Palpitations [Unknown]
  - Papule [Unknown]
  - Dyspnoea [Not Recovered/Not Resolved]

NARRATIVE: CASE EVENT DATE: 201704
